FAERS Safety Report 8880339 (Version 1)
Quarter: 2012Q4

REPORT INFORMATION
  Report Type: 
  Country: US (occurrence: US)
  Receive Date: 20121101
  Receipt Date: 20121101
  Transmission Date: 20130627
  Serious: Yes (Other)
  Sender: FDA-Public Use
  Company Number: US-PFIZER INC-2012266956

PATIENT

DRUGS (1)
  1. ESTRING [Suspect]
     Dosage: 2 mg, UNK

REACTIONS (2)
  - Bladder disorder [Unknown]
  - Inappropriate schedule of drug administration [Unknown]
